FAERS Safety Report 6770658-0 (Version None)
Quarter: 2010Q2

REPORT INFORMATION
  Report Type: 
  Country: None (occurrence: None)
  Receive Date: 20100615
  Receipt Date: 20100610
  Transmission Date: 20101027
  Serious: Yes (Other)
  Sender: FDA-Public Use
  Company Number: CA-GILEAD-2010-0029721

PATIENT
  Age: 48 Year
  Sex: Male

DRUGS (1)
  1. VIREAD [Suspect]
     Indication: HEPATITIS B
     Dates: start: 20100605

REACTIONS (4)
  - ABDOMINAL DISCOMFORT [None]
  - CHROMATURIA [None]
  - FATIGUE [None]
  - JAUNDICE [None]
